FAERS Safety Report 14872839 (Version 1)
Quarter: 2018Q2

REPORT INFORMATION
  Report Type: Spontaneous
  Country: GR (occurrence: GR)
  Receive Date: 20180510
  Receipt Date: 20180510
  Transmission Date: 20180711
  Serious: Yes (Death)
  Sender: FDA-Public Use
  Company Number: GR-B.I. PHARMACEUTICALS,INC./RIDGEFIELD-2018-BI-024949

PATIENT
  Age: 71 Year
  Sex: Male

DRUGS (1)
  1. PRAXBIND [Suspect]
     Active Substance: IDARUCIZUMAB
     Indication: SUBARACHNOID HAEMORRHAGE
     Route: 042
     Dates: start: 20180506, end: 20180506

REACTIONS (2)
  - Brain oedema [Fatal]
  - Subarachnoid haematoma [Fatal]

NARRATIVE: CASE EVENT DATE: 20180508
